FAERS Safety Report 9648884 (Version 2)
Quarter: 2014Q1

REPORT INFORMATION
  Report Type: Spontaneous
  Country: US (occurrence: None)
  Receive Date: 20131018
  Receipt Date: 20140122
  Transmission Date: 20141002
  Serious: No
  Sender: FDA-Public Use
  Company Number: AEGR000151

PATIENT
  Age: 63 Year
  Sex: Male
  Weight: 137 kg

DRUGS (1)
  1. JUXTAPID [Suspect]
     Indication: HYPERCHOLESTEROLAEMIA
     Route: 048
     Dates: start: 201308

REACTIONS (2)
  - Off label use [None]
  - Weight decreased [None]
